FAERS Safety Report 4958839-X (Version None)
Quarter: 2006Q1

REPORT INFORMATION
  Report Type: 
  Country: None (occurrence: None)
  Receive Date: 20060324
  Receipt Date: 20060314
  Transmission Date: 20060701
  Serious: Yes (Life-Threatening, Other)
  Sender: FDA-Public Use
  Company Number: HQWYE324714MAR06

PATIENT
  Age: 15 Year
  Sex: Female

DRUGS (4)
  1. PANTOLOC (PANTOPRAZOLE,) [Suspect]
     Indication: DYSPEPSIA
     Dosage: 40 MG 1X PER 1 TOT
     Dates: start: 20041102, end: 20041102
  2. BIOTIN [Concomitant]
  3. ENALAPRIL MALEATE [Concomitant]
  4. NOVONAPROX (NAPROXEN) [Concomitant]

REACTIONS (2)
  - PHARYNGEAL OEDEMA [None]
  - STOMATITIS [None]
